FAERS Safety Report 5569591-1 (Version None)
Quarter: 2007Q4

REPORT INFORMATION
  Report Type: 
  Country: None (occurrence: None)
  Receive Date: 20071220
  Receipt Date: 20071210
  Transmission Date: 20080405
  Serious: Yes (Other)
  Sender: FDA-Public Use
  Company Number: BE-ELI_LILLY_AND_COMPANY-BE200708006370

PATIENT
  Sex: Male
  Weight: 60 kg

DRUGS (8)
  1. STRATTERA [Suspect]
     Indication: ATTENTION DEFICIT/HYPERACTIVITY DISORDER
     Dosage: 10 MG, DAILY (1/D)
     Route: 048
     Dates: start: 20070701, end: 20070701
  2. STRATTERA [Suspect]
     Dosage: 20 MG, DAILY (1/D)
     Route: 048
     Dates: start: 20070701, end: 20070701
  3. STRATTERA [Suspect]
     Dosage: 30 MG, DAILY (1/D)
     Route: 048
     Dates: start: 20070701, end: 20070801
  4. STRATTERA [Suspect]
     Dosage: 40 MG, DAILY (1/D)
     Route: 048
     Dates: start: 20070801, end: 20070801
  5. STRATTERA [Suspect]
     Dosage: 50 MG, DAILY (1/D)
     Route: 048
     Dates: start: 20070801, end: 20070801
  6. STRATTERA [Suspect]
     Dosage: 60 MG, DAILY (1/D)
     Route: 048
     Dates: start: 20070801, end: 20070801
  7. STRATTERA [Suspect]
     Dosage: 50 MG, DAILY (1/D)
     Route: 048
     Dates: start: 20070801, end: 20070901
  8. STRATTERA [Suspect]
     Dosage: 5 MG, 2/D
     Route: 048
     Dates: start: 20070901, end: 20070920

REACTIONS (4)
  - ADRENERGIC SYNDROME [None]
  - AGGRESSION [None]
  - ARRHYTHMIA [None]
  - SINUS TACHYCARDIA [None]
